FAERS Safety Report 15691647 (Version 1)
Quarter: 2018Q4

REPORT INFORMATION
  Report Type: Spontaneous
  Country: AU (occurrence: AU)
  Receive Date: 20181205
  Receipt Date: 20181205
  Transmission Date: 20190205
  Serious: Yes (Other)
  Sender: FDA-Public Use
  Company Number: AU-MYLANLABS-2018M1089266

PATIENT
  Age: 17 Year
  Sex: Female

DRUGS (20)
  1. MESALAZINE [Suspect]
     Active Substance: MESALAMINE
     Indication: INFLAMMATORY BOWEL DISEASE
     Dosage: UNK
  2. MESALAZINE [Suspect]
     Active Substance: MESALAMINE
     Indication: MIGRAINE
  3. VENLAFAXINE [Suspect]
     Active Substance: VENLAFAXINE HYDROCHLORIDE
     Indication: DEPRESSION
  4. FLUDROCORTISONE [Suspect]
     Active Substance: FLUDROCORTISONE
     Indication: ADRENAL INSUFFICIENCY
  5. TOPIRAMATE. [Suspect]
     Active Substance: TOPIRAMATE
     Indication: DEPRESSION
  6. VENLAFAXINE [Suspect]
     Active Substance: VENLAFAXINE HYDROCHLORIDE
     Indication: INFLAMMATORY BOWEL DISEASE
     Dosage: UNK
  7. HYDROCORTISONE. [Suspect]
     Active Substance: HYDROCORTISONE
     Indication: INFLAMMATORY BOWEL DISEASE
     Dosage: UNK
     Route: 048
  8. MESALAZINE [Suspect]
     Active Substance: MESALAMINE
     Indication: ADRENAL INSUFFICIENCY
  9. MESALAZINE [Suspect]
     Active Substance: MESALAMINE
     Indication: DEPRESSION
  10. TOPIRAMATE. [Suspect]
     Active Substance: TOPIRAMATE
     Indication: ADRENAL INSUFFICIENCY
  11. FLUDROCORTISONE [Suspect]
     Active Substance: FLUDROCORTISONE
     Indication: MIGRAINE
  12. HYDROCORTISONE. [Suspect]
     Active Substance: HYDROCORTISONE
     Indication: DEPRESSION
  13. VENLAFAXINE [Suspect]
     Active Substance: VENLAFAXINE HYDROCHLORIDE
     Indication: MIGRAINE
  14. VENLAFAXINE [Suspect]
     Active Substance: VENLAFAXINE HYDROCHLORIDE
     Indication: ADRENAL INSUFFICIENCY
  15. FLUDROCORTISONE [Suspect]
     Active Substance: FLUDROCORTISONE
     Indication: INFLAMMATORY BOWEL DISEASE
     Dosage: UNK
  16. HYDROCORTISONE. [Suspect]
     Active Substance: HYDROCORTISONE
     Indication: ADRENAL INSUFFICIENCY
  17. TOPIRAMATE. [Suspect]
     Active Substance: TOPIRAMATE
     Indication: INFLAMMATORY BOWEL DISEASE
     Dosage: UNK
  18. TOPIRAMATE. [Suspect]
     Active Substance: TOPIRAMATE
     Indication: MIGRAINE
  19. HYDROCORTISONE. [Suspect]
     Active Substance: HYDROCORTISONE
     Indication: MIGRAINE
  20. FLUDROCORTISONE [Suspect]
     Active Substance: FLUDROCORTISONE
     Indication: DEPRESSION

REACTIONS (8)
  - Lethargy [Unknown]
  - Quality of life decreased [Recovering/Resolving]
  - Arthralgia [Unknown]
  - Wrong technique in product usage process [Unknown]
  - Adrenal insufficiency [Unknown]
  - Mobility decreased [Unknown]
  - Asthenia [Unknown]
  - Incorrect route of product administration [Unknown]
